FAERS Safety Report 13651909 (Version 2)
Quarter: 2017Q3

REPORT INFORMATION
  Report Type: Spontaneous
  Country: US (occurrence: US)
  Receive Date: 20170614
  Receipt Date: 20170721
  Transmission Date: 20171127
  Serious: Yes (Death)
  Sender: FDA-Public Use
  Company Number: US-ALKERMES INC.-ALK-2017-002353

PATIENT
  Age: 27 Year
  Sex: Male
  Weight: 90.7 kg

DRUGS (1)
  1. VIVITROL [Suspect]
     Active Substance: NALTREXONE
     Indication: ALCOHOLISM
     Dosage: 380 MG, QMO
     Route: 030
     Dates: start: 20170417, end: 20170417

REACTIONS (2)
  - Mental disorder [Unknown]
  - Death [Fatal]

NARRATIVE: CASE EVENT DATE: 20170605
